FAERS Safety Report 11753333 (Version 4)
Quarter: 2019Q2

REPORT INFORMATION
  Report Type: Report from Study
  Country: US (occurrence: US)
  Receive Date: 20151119
  Receipt Date: 20190610
  Transmission Date: 20190711
  Serious: Yes (Death, Hospitalization, Other)
  Sender: FDA-Public Use
  Company Number: US-ROCHE-1176991

PATIENT
  Age: 32 Year
  Sex: Female

DRUGS (7)
  1. VEMURAFENIB. [Suspect]
     Active Substance: VEMURAFENIB
     Indication: MALIGNANT MELANOMA
     Route: 065
     Dates: start: 20120818
  2. INTERLEUKIN-2 [Suspect]
     Active Substance: ALDESLEUKIN
     Indication: MALIGNANT MELANOMA
     Dosage: 6 DOSES
     Route: 065
     Dates: start: 20121024, end: 20121026
  3. VEMURAFENIB. [Suspect]
     Active Substance: VEMURAFENIB
     Dosage: DOSE INCREASED
     Route: 065
     Dates: start: 20121123
  4. CYCLOPHOSPHAMIDE. [Suspect]
     Active Substance: CYCLOPHOSPHAMIDE
     Indication: MALIGNANT MELANOMA
     Route: 065
     Dates: start: 20121016, end: 20121017
  5. VEMURAFENIB. [Suspect]
     Active Substance: VEMURAFENIB
     Dosage: DOSE INCREASED
     Route: 065
     Dates: start: 20121130, end: 20121204
  6. FLUDARABINE [Suspect]
     Active Substance: FLUDARABINE PHOSPHATE
     Indication: MALIGNANT MELANOMA
     Route: 065
     Dates: start: 20121018, end: 20121022
  7. VEMURAFENIB. [Suspect]
     Active Substance: VEMURAFENIB
     Route: 065
     Dates: start: 20121115

REACTIONS (18)
  - Rash maculo-papular [Recovered/Resolved]
  - Asthenia [Unknown]
  - Vomiting [Recovered/Resolved]
  - Anaemia [Recovered/Resolved]
  - Febrile neutropenia [Recovered/Resolved]
  - Lymphocyte count decreased [Recovered/Resolved]
  - Hypophosphataemia [Recovered/Resolved]
  - Dermatitis acneiform [Recovered/Resolved]
  - Malignant melanoma [Fatal]
  - Neutrophil count decreased [Recovered/Resolved]
  - Hypophagia [Unknown]
  - Hyponatraemia [Recovered/Resolved]
  - Nausea [Recovered/Resolved]
  - Abdominal pain [Recovered/Resolved]
  - Fluid intake reduced [Unknown]
  - Pyrexia [Recovered/Resolved]
  - Platelet count decreased [Recovered/Resolved]
  - White blood cell count decreased [Recovered/Resolved]

NARRATIVE: CASE EVENT DATE: 20121016
